FAERS Safety Report 25156754 (Version 3)
Quarter: 2025Q2

REPORT INFORMATION
  Report Type: Report from Study
  Country: CA (occurrence: CA)
  Receive Date: 20250403
  Receipt Date: 20250523
  Transmission Date: 20250716
  Serious: Yes (Disabling, Other)
  Sender: PFIZER
  Company Number: CA-PFIZER INC-202500067069

PATIENT
  Age: 52 Year
  Sex: Male

DRUGS (6)
  1. ADALIMUMAB [Suspect]
     Active Substance: ADALIMUMAB
     Indication: Crohn^s disease
     Route: 058
  2. ADALIMUMAB [Suspect]
     Active Substance: ADALIMUMAB
     Dosage: 80 MG, WEEKLY
  3. ADALIMUMAB [Suspect]
     Active Substance: ADALIMUMAB
  4. ADALIMUMAB [Suspect]
     Active Substance: ADALIMUMAB
     Route: 058
  5. COLESEVELAM HYDROCHLORIDE [Concomitant]
     Active Substance: COLESEVELAM HYDROCHLORIDE
  6. PREDNISONE [Concomitant]
     Active Substance: PREDNISONE

REACTIONS (12)
  - Arthralgia [Not Recovered/Not Resolved]
  - Asthenia [Not Recovered/Not Resolved]
  - Diarrhoea [Not Recovered/Not Resolved]
  - Flatulence [Not Recovered/Not Resolved]
  - Injection site pruritus [Not Recovered/Not Resolved]
  - Injection site rash [Not Recovered/Not Resolved]
  - Loss of personal independence in daily activities [Not Recovered/Not Resolved]
  - Pruritus [Not Recovered/Not Resolved]
  - Urticaria [Not Recovered/Not Resolved]
  - Device malfunction [Not Recovered/Not Resolved]
  - Device use error [Not Recovered/Not Resolved]
  - Incorrect dose administered [Not Recovered/Not Resolved]
